FAERS Safety Report 18729137 (Version 1)
Quarter: 2021Q1

REPORT INFORMATION
  Report Type: Report from Study
  Country: MX (occurrence: MX)
  Receive Date: 20210112
  Receipt Date: 20210112
  Transmission Date: 20210419
  Serious: Yes (Death)
  Sender: FDA-Public Use
  Company Number: NVSC2021MX005159

PATIENT
  Age: 48 Year
  Sex: Male
  Weight: 98 kg

DRUGS (1)
  1. TASIGNA [Suspect]
     Active Substance: NILOTINIB
     Indication: CHRONIC MYELOID LEUKAEMIA
     Dosage: 800 MG, QD
     Route: 048
     Dates: start: 20130401, end: 20201230

REACTIONS (2)
  - Myocardial infarction [Fatal]
  - Product prescribing error [Unknown]

NARRATIVE: CASE EVENT DATE: 20201231
